FAERS Safety Report 7745914-X (Version None)
Quarter: 2011Q3

REPORT INFORMATION
  Report Type: 
  Country: None (occurrence: None)
  Receive Date: 20110913
  Receipt Date: 20110906
  Transmission Date: 20111222
  Serious: No
  Sender: FDA-Public Use
  Company Number: US-PFIZER INC-2011209464

PATIENT
  Sex: Male

DRUGS (2)
  1. ZOLOFT [Suspect]
     Dosage: 25 MG, 1X/DAY
     Dates: start: 20110904
  2. ZOLOFT [Suspect]
     Indication: PANIC ATTACK
     Dosage: 12.5 MG, 1X/DAY
     Dates: start: 20110902

REACTIONS (2)
  - DRY MOUTH [None]
  - NERVOUSNESS [None]
